FAERS Safety Report 9641466 (Version 5)
Quarter: 2014Q1

REPORT INFORMATION
  Report Type: Spontaneous
  Country: US (occurrence: None)
  Receive Date: 20131021
  Receipt Date: 20140210
  Transmission Date: 20141002
  Serious: Yes (Death, Hospitalization)
  Sender: FDA-Public Use
  Company Number: 151823

PATIENT
  Age: 68 Year
  Sex: Female
  Weight: 49 kg

DRUGS (1)
  1. LEUCOVORIN CALCIUM FOR INJ. 50MG [Suspect]
     Indication: COLORECTAL CANCER METASTATIC
     Route: 042
     Dates: start: 20120927

REACTIONS (10)
  - Blood bilirubin increased [None]
  - Abdominal pain [None]
  - Alanine aminotransferase increased [None]
  - Aspartate aminotransferase increased [None]
  - Blood alkaline phosphatase increased [None]
  - Blood albumin decreased [None]
  - General physical health deterioration [None]
  - Hepatotoxicity [None]
  - Malignant neoplasm progression [None]
  - Colorectal cancer metastatic [None]
